FAERS Safety Report 18288903 (Version 1)
Quarter: 2020Q3

REPORT INFORMATION
  Report Type: Spontaneous
  Country: US (occurrence: US)
  Receive Date: 20200921
  Receipt Date: 20200921
  Transmission Date: 20201103
  Serious: No
  Sender: FDA-Public Use
  Company Number: None

PATIENT
  Age: 69 Year
  Sex: Female
  Weight: 78.3 kg

DRUGS (8)
  1. OLMESARTAN MEDOXOMIL. [Concomitant]
     Active Substance: OLMESARTAN MEDOXOMIL
  2. HAIR, NAIL + SKIN OTC VITAMINS [Concomitant]
  3. MYRBETRIQ [Concomitant]
     Active Substance: MIRABEGRON
  4. OLLY WOMEN^S DAILY VITAMINS [Concomitant]
  5. ARMOUR THYROID [Suspect]
     Active Substance: THYROID, PORCINE
     Indication: HYPOTHYROIDISM
     Dosage: ?          QUANTITY:1 TABLET(S);?
     Route: 048
  6. PANTOPRAZOLE [Concomitant]
     Active Substance: PANTOPRAZOLE
  7. VENLAFAXINE [Concomitant]
     Active Substance: VENLAFAXINE HYDROCHLORIDE
  8. BUPROPION. [Concomitant]
     Active Substance: BUPROPION

REACTIONS (9)
  - Alopecia [None]
  - Weight decreased [None]
  - Fatigue [None]
  - Nasopharyngitis [None]
  - Weight increased [None]
  - Constipation [None]
  - Depression [None]
  - Hypertension [None]
  - Onychoclasis [None]
